FAERS Safety Report 23613536 (Version 1)
Quarter: 2024Q1

REPORT INFORMATION
  Report Type: Spontaneous
  Country: US (occurrence: US)
  Receive Date: 20240308
  Receipt Date: 20240308
  Transmission Date: 20240410
  Serious: No
  Sender: FDA-Public Use
  Company Number: US-009507513-2403USA002829

PATIENT
  Sex: Female

DRUGS (3)
  1. NOXAFIL [Suspect]
     Active Substance: POSACONAZOLE
     Indication: Antifungal prophylaxis
     Route: 048
  2. IVOSIDENIB [Suspect]
     Active Substance: IVOSIDENIB
     Indication: Acute myeloid leukaemia
     Dosage: DOSE OF 250 TO 500 MG, QD
     Route: 048
  3. IVOSIDENIB [Suspect]
     Active Substance: IVOSIDENIB
     Indication: Myelodysplastic syndrome

REACTIONS (2)
  - Inhibitory drug interaction [Unknown]
  - Drug level decreased [Unknown]
